FAERS Safety Report 10179693 (Version 2)
Quarter: 2014Q2

REPORT INFORMATION
  Report Type: Spontaneous
  Country: US (occurrence: US)
  Receive Date: 20140519
  Receipt Date: 20140527
  Transmission Date: 20141212
  Serious: No
  Sender: FDA-Public Use
  Company Number: US-PFIZER INC-2014131984

PATIENT
  Age: 79 Year
  Sex: Female

DRUGS (22)
  1. LIPITOR [Suspect]
     Dosage: UNK
  2. ZOLOFT [Suspect]
     Dosage: UNK
  3. GEMFIBROZIL [Suspect]
     Dosage: UNK
  4. VERAPAMIL HCL [Suspect]
     Dosage: UNK
  5. NEOSPORIN [Suspect]
     Dosage: UNK
  6. MORPHINE SULFATE [Suspect]
     Dosage: UNK
  7. JANUMET [Suspect]
     Dosage: UNK
  8. SUCRALFATE [Suspect]
     Dosage: UNK
  9. PHENOBARBITAL [Suspect]
     Dosage: UNK
  10. FLEXERIL [Suspect]
     Dosage: UNK
  11. CYCLOBENZAPRINE [Suspect]
     Dosage: UNK
  12. CODEINE [Suspect]
     Dosage: UNK
  13. VALIUM [Suspect]
     Dosage: UNK
  14. VICODIN [Suspect]
     Dosage: UNK
  15. DARVOCET A 500 [Suspect]
     Dosage: UNK
  16. DARVON [Suspect]
     Dosage: UNK
  17. TAGAMET [Suspect]
     Dosage: UNK
  18. TUBERCULIN [Suspect]
     Dosage: UNK
  19. FENOFIBRATE [Suspect]
     Dosage: UNK
  20. MENTHOL [Suspect]
     Dosage: UNK
  21. BENZALKONIUM [Suspect]
     Dosage: UNK
  22. IODINE [Suspect]
     Dosage: UNK

REACTIONS (1)
  - Drug hypersensitivity [Unknown]
